FAERS Safety Report 20149418 (Version 1)
Quarter: 2021Q4

REPORT INFORMATION
  Report Type: Spontaneous
  Country: KR (occurrence: KR)
  Receive Date: 20211205
  Receipt Date: 20211205
  Transmission Date: 20220303
  Serious: Yes (Other)
  Sender: FDA-Public Use
  Company Number: KR-MLMSERVICE-20211116-3223150-1

PATIENT
  Age: 71 Year
  Sex: Male
  Weight: 55 kg

DRUGS (9)
  1. DONEPEZIL [Interacting]
     Active Substance: DONEPEZIL
     Indication: Dementia
     Dosage: 5 MILLIGRAM
     Route: 065
  2. ROCURONIUM [Interacting]
     Active Substance: ROCURONIUM BROMIDE
     Indication: Neuromuscular blockade
     Dosage: 50 MILLIGRAM, BOLUS INJECTION 50 MG (0.9 MG/KG)
     Route: 065
  3. ROCURONIUM [Interacting]
     Active Substance: ROCURONIUM BROMIDE
     Dosage: 5 MILLIGRAM
     Route: 065
  4. ROCURONIUM [Interacting]
     Active Substance: ROCURONIUM BROMIDE
     Dosage: 10 MILLIGRAM, 10 MG (0.18 MG/KG); BOLUS INJECTION
     Route: 065
  5. ROCURONIUM [Interacting]
     Active Substance: ROCURONIUM BROMIDE
     Dosage: 9 MICROGRAM/KILOGRAM, CONTINUOUS INFUSION AT A RATE OF 9 MCG/KG/MIN, INFUSION
     Route: 065
  6. QUETIAPINE [Concomitant]
     Active Substance: QUETIAPINE
     Indication: Product used for unknown indication
     Dosage: 25 MILLIGRAM
     Route: 065
  7. REMIFENTANIL [Concomitant]
     Active Substance: REMIFENTANIL
     Indication: Induction and maintenance of anaesthesia
     Dosage: UNK (TARGET-CONTROLLED INFUSION)
     Route: 065
  8. PREGABALIN [Concomitant]
     Active Substance: PREGABALIN
     Indication: Product used for unknown indication
     Dosage: 75 MILLIGRAM, BID
     Route: 065
  9. PROPOFOL [Concomitant]
     Active Substance: PROPOFOL
     Indication: Induction and maintenance of anaesthesia
     Dosage: UNK (TARGET-CONTROLLED INFUSION)
     Route: 065

REACTIONS (3)
  - Therapeutic response shortened [Recovered/Resolved]
  - Drug interaction [Unknown]
  - Drug resistance [Unknown]
